FAERS Safety Report 4703187-6 (Version None)
Quarter: 2005Q2

REPORT INFORMATION
  Report Type: 
  Country: None (occurrence: None)
  Receive Date: 20050629
  Receipt Date: 20050520
  Transmission Date: 20051028
  Serious: Yes (Hospitalization, Other)
  Sender: FDA-Public Use
  Company Number: 2005AP02960

PATIENT
  Age: 21069 Day
  Sex: Male
  Weight: 80.8 kg

DRUGS (10)
  1. IRESSA [Suspect]
     Indication: PROSTATE CANCER
     Route: 048
     Dates: start: 20050407, end: 20050428
  2. IRESSA [Suspect]
     Route: 048
     Dates: start: 20050502, end: 20050512
  3. RADIOTHERAPY [Suspect]
     Indication: PROSTATE CANCER
     Dosage: 1.8 GY/DAY
     Dates: start: 20050414, end: 20050512
  4. RADIOTHERAPY [Suspect]
     Dates: start: 20050530
  5. AMARYL [Concomitant]
     Indication: DIABETES MELLITUS
     Dosage: PRE SCREENING
     Route: 048
  6. GLUGOPHAGE [Concomitant]
     Indication: DIABETES MELLITUS
     Dosage: PRE-SCREENING
     Route: 048
  7. LINATIL [Concomitant]
     Indication: HYPERTONIA
     Dosage: PRE SCREENING
     Route: 048
  8. DISPERIN [Concomitant]
     Indication: PROPHYLAXIS
     Dosage: PRE SCREENING
     Route: 048
  9. ACTRAPID [Concomitant]
     Indication: DIABETES MELLITUS
     Dosage: PRE SCREENING
     Route: 058
  10. LANTUS [Concomitant]
     Indication: DIABETES MELLITUS
     Dosage: PRE SCREENING
     Route: 058

REACTIONS (2)
  - CALCULUS URETERIC [None]
  - RENAL FAILURE [None]
